FAERS Safety Report 12020150 (Version 1)
Quarter: 2016Q1

REPORT INFORMATION
  Report Type: Spontaneous
  Country: HR (occurrence: HR)
  Receive Date: 20160206
  Receipt Date: 20160206
  Transmission Date: 20160526
  Serious: Yes (Death, Hospitalization)
  Sender: FDA-Public Use
  Company Number: HR-ABBVIE-16K-216-1552489-00

PATIENT
  Age: 52 Year
  Sex: Female
  Weight: 62 kg

DRUGS (2)
  1. HUMIRA [Suspect]
     Active Substance: ADALIMUMAB
     Indication: RHEUMATOID ARTHRITIS
     Route: 058
     Dates: start: 20150811, end: 20150824
  2. HUMIRA [Suspect]
     Active Substance: ADALIMUMAB
     Indication: PSORIATIC ARTHROPATHY

REACTIONS (14)
  - Leishmaniasis [Unknown]
  - Histiocytosis haematophagic [Fatal]
  - Pancytopenia [Fatal]
  - Necrotising fasciitis [Fatal]
  - Hepatic function abnormal [Fatal]
  - Altered state of consciousness [Fatal]
  - Sepsis [Fatal]
  - Pseudomonas infection [Unknown]
  - Renal impairment [Fatal]
  - Klebsiella infection [Unknown]
  - Cellulitis [Fatal]
  - Candida infection [Unknown]
  - Lung disorder [Fatal]
  - Septic shock [Fatal]

NARRATIVE: CASE EVENT DATE: 2015
